FAERS Safety Report 8353905 (Version 4)
Quarter: 2013Q4

REPORT INFORMATION
  Report Type: Spontaneous
  Country: US (occurrence: US)
  Receive Date: 20120125
  Receipt Date: 20131203
  Transmission Date: 20140711
  Serious: Yes (Hospitalization)
  Sender: FDA-Public Use
  Company Number: US-ACTELION-A-NJ2012-59843

PATIENT
  Age: 24 Year
  Sex: Female

DRUGS (3)
  1. TRACLEER [Suspect]
     Indication: PULMONARY ARTERIAL HYPERTENSION
     Dosage: 125 MG, BID
     Route: 048
     Dates: start: 20111014
  2. TREPROSTINIL [Concomitant]
     Dosage: 9.45 NG/KG, PER MIN
  3. COUMADIN [Concomitant]
     Dosage: 5 MG, UNK

REACTIONS (8)
  - Pregnancy [Recovered/Resolved]
  - Abortion induced [Recovered/Resolved]
  - Syncope [Unknown]
  - Palpitations [Unknown]
  - Dizziness [Unknown]
  - Loss of consciousness [Unknown]
  - Hypotension [Unknown]
  - Urinary tract infection [Unknown]
